FAERS Safety Report 5430461-0 (Version None)
Quarter: 2007Q3

REPORT INFORMATION
  Report Type: 
  Country: None (occurrence: None)
  Receive Date: 20070828
  Receipt Date: 20070816
  Transmission Date: 20080115
  Serious: Yes (Death, Hospitalization)
  Sender: FDA-Public Use
  Company Number: 2007BI013734

PATIENT
  Age: 70 Year
  Sex: Male

DRUGS (1)
  1. AVONEX [Suspect]
     Indication: MULTIPLE SCLEROSIS
     Dosage: 30 UG;QW; IM
     Route: 030
     Dates: start: 19990701, end: 20070101

REACTIONS (5)
  - DRUG INEFFECTIVE [None]
  - MICTURITION DISORDER [None]
  - MULTIPLE SCLEROSIS RELAPSE [None]
  - PARALYSIS [None]
  - PNEUMONIA [None]
